FAERS Safety Report 4586389-1 (Version None)
Quarter: 2005Q1

REPORT INFORMATION
  Report Type: 
  Country: None (occurrence: None)
  Receive Date: 20050125
  Receipt Date: 20040909
  Transmission Date: 20050727
  Serious: No
  Sender: FDA-Public Use
  Company Number: USA040977819

PATIENT
  Age: 76 Year
  Sex: Female
  Weight: 54 kg

DRUGS (2)
  1. FORTEO [Suspect]
     Indication: COMPRESSION FRACTURE
     Dosage: 20 UG/1 DAY
     Dates: start: 20040601
  2. CALCIUM WITH VITAMIN D [Concomitant]

REACTIONS (4)
  - BACK PAIN [None]
  - JOINT STIFFNESS [None]
  - MUSCLE SPASMS [None]
  - PAIN IN EXTREMITY [None]
